FAERS Safety Report 7726794-5 (Version None)
Quarter: 2011Q3

REPORT INFORMATION
  Report Type: 
  Country: None (occurrence: None)
  Receive Date: 20110902
  Receipt Date: 20110830
  Transmission Date: 20111222
  Serious: Yes (Hospitalization)
  Sender: FDA-Public Use
  Company Number: FR-GLAXOSMITHKLINE-B0683706A

PATIENT
  Sex: Male

DRUGS (6)
  1. AMOXICILLIN TRIHYDRATE [Suspect]
     Indication: ENDOCARDITIS
     Dosage: 2G SIX TIMES PER DAY
     Route: 042
     Dates: start: 20100206, end: 20100301
  2. OXACILLIN [Concomitant]
     Indication: ENDOCARDITIS
     Route: 048
     Dates: start: 20100204, end: 20100206
  3. OFLOXACIN [Concomitant]
     Indication: ENDOCARDITIS
     Dosage: 200MG TWICE PER DAY
     Route: 048
     Dates: start: 20100204, end: 20100206
  4. LOVENOX [Concomitant]
     Dosage: .4ML PER DAY
     Route: 058
     Dates: start: 20100204, end: 20100222
  5. VANCOMYCIN [Concomitant]
     Indication: ENDOCARDITIS
     Dosage: 4G PER DAY
     Route: 048
     Dates: start: 20100206, end: 20100223
  6. GENTAMICIN [Concomitant]
     Indication: ENDOCARDITIS
     Dosage: 5MGK PER DAY
     Route: 065
     Dates: start: 20100204, end: 20100206

REACTIONS (14)
  - RASH MACULO-PAPULAR [None]
  - ALANINE AMINOTRANSFERASE INCREASED [None]
  - BLOOD BILIRUBIN INCREASED [None]
  - HISTIOCYTOSIS HAEMATOPHAGIC [None]
  - PYREXIA [None]
  - LYMPHOPENIA [None]
  - DRUG RASH WITH EOSINOPHILIA AND SYSTEMIC SYMPTOMS [None]
  - SKIN TEST POSITIVE [None]
  - CHILLS [None]
  - LEUKOPENIA [None]
  - ASPARTATE AMINOTRANSFERASE INCREASED [None]
  - CHOLESTASIS [None]
  - BLOOD ALKALINE PHOSPHATASE INCREASED [None]
  - PLATELET COUNT DECREASED [None]
